FAERS Safety Report 6315180-0 (Version None)
Quarter: 2009Q3

REPORT INFORMATION
  Report Type: 
  Country: None (occurrence: None)
  Receive Date: 20090819
  Receipt Date: 20090805
  Transmission Date: 20100115
  Serious: Yes (Other)
  Sender: FDA-Public Use
  Company Number: PL-ROCHE-647016

PATIENT
  Sex: Male
  Weight: 73 kg

DRUGS (16)
  1. MIRCERA [Suspect]
     Indication: ANAEMIA
     Route: 058
     Dates: start: 20090402
  2. MIRCERA [Suspect]
     Route: 058
     Dates: start: 20090430
  3. MIRCERA [Suspect]
     Route: 058
     Dates: start: 20090528
  4. MIRCERA [Suspect]
     Route: 058
     Dates: start: 20090626
  5. MIRCERA [Suspect]
     Route: 058
     Dates: start: 20090723
  6. MIRCERA [Suspect]
     Route: 058
     Dates: start: 20090729
  7. PEGASYS [Suspect]
     Indication: HEPATITIS C
     Route: 058
     Dates: start: 20081114
  8. RIBAVIRIN [Suspect]
     Indication: HEPATITIS C
     Dosage: FREQUENCY REPORTED AS DAILY. DRUG NAME: RYBAVIRIN (NOS)
     Route: 048
     Dates: start: 20081114
  9. ENCORTON [Concomitant]
     Indication: LIVER TRANSPLANT
     Dosage: FREQUENCY REPORTED AS DAILY.
     Route: 048
     Dates: start: 20071206
  10. NEORAL [Concomitant]
     Indication: LIVER TRANSPLANT
     Route: 048
     Dates: start: 20090122
  11. URSO FALK [Concomitant]
     Indication: LIVER TRANSPLANT
     Route: 048
     Dates: start: 20071206
  12. GRANOCYTE [Concomitant]
     Indication: NEUTROPENIA
     Dosage: DOSE: 1 AMPOULE.
     Route: 048
     Dates: start: 20081208
  13. GLOBULIN NOS [Concomitant]
     Dosage: DRUG NAME REPORTED AS: ANTY-HBS GLOBULIN.
     Route: 030
     Dates: start: 20071206
  14. CALPEROS [Concomitant]
  15. SPIRONOL [Concomitant]
  16. GASEC [Concomitant]

REACTIONS (4)
  - ANAEMIA [None]
  - BLOOD COUNT ABNORMAL [None]
  - BONE MARROW FAILURE [None]
  - DRUG INEFFECTIVE [None]
